FAERS Safety Report 8799045 (Version 1)
Quarter: 2012Q4

REPORT INFORMATION
  Report Type: 
  Country: JP (occurrence: JP)
  Receive Date: 20120920
  Receipt Date: 20120920
  Transmission Date: 20130627
  Serious: Yes (Death)
  Sender: FDA-Public Use
  Company Number: PHHY2012JP081153

PATIENT
  Age: 63 Year
  Sex: Male

DRUGS (11)
  1. PREDNISOLONE [Suspect]
     Indication: DIFFUSE LARGE B-CELL LYMPHOMA STAGE IV
     Dosage: 80 mg, per day for 14 days
  2. PREDNISONE [Suspect]
     Indication: LYMPHOMA
     Dosage: 40 mg, daily
  3. MICAFUNGIN [Suspect]
     Indication: FUNGAL INFECTION
     Dosage: 100 mg, per day
  4. MICAFUNGIN [Suspect]
     Dosage: 150 mg, per day
  5. RITUXIMAB [Suspect]
     Indication: DIFFUSE LARGE B-CELL LYMPHOMA STAGE IV
     Dosage: 670 mg, per day for 6 days
  6. PIPERACILLIN SODIUM W/TAZOBACTAM SODIUM [Concomitant]
     Dosage: 2.25 g, Q8H
  7. CIPROFLOXACIN [Concomitant]
     Dosage: 200 mg, Q12H
  8. ETOPOSIDE [Concomitant]
     Indication: DIFFUSE LARGE B-CELL LYMPHOMA STAGE IV
     Dosage: 66 mg, per day for 4 consequetive days
  9. VINCRISTINE [Concomitant]
     Indication: DIFFUSE LARGE B-CELL LYMPHOMA STAGE IV
     Dosage: 0.7 mg, per day for 4 consecutive day
  10. CYCLOPHOSPHAMIDE [Concomitant]
     Indication: DIFFUSE LARGE B-CELL LYMPHOMA STAGE IV
     Dosage: 330 mg, per day for 5 days
  11. DOXORUBICIN [Concomitant]
     Indication: DIFFUSE LARGE B-CELL LYMPHOMA STAGE IV
     Dosage: 17 mg, per day for 4 consecutive day

REACTIONS (7)
  - Pulmonary haemorrhage [Fatal]
  - Zygomycosis [Fatal]
  - Skin lesion [Fatal]
  - Pyrexia [Fatal]
  - Productive cough [Fatal]
  - Respiratory failure [Fatal]
  - Device related infection [None]
